FAERS Safety Report 5370382-5 (Version None)
Quarter: 2007Q2

REPORT INFORMATION
  Report Type: 
  Country: None (occurrence: None)
  Receive Date: 20070626
  Receipt Date: 20070621
  Transmission Date: 20071010
  Serious: Yes (Disabling)
  Sender: FDA-Public Use
  Company Number: FR-BRISTOL-MYERS SQUIBB COMPANY-13823331

PATIENT
  Age: 29 Year
  Sex: Male
  Weight: 36 kg

DRUGS (15)
  1. BICNU [Suspect]
     Route: 042
     Dates: start: 19820501, end: 19841201
  2. CYCLOPHOSPHAMIDE [Suspect]
     Dates: start: 19820501, end: 19860801
  3. METHOTREXATE [Suspect]
     Dates: start: 19860917, end: 19861103
  4. ATROVENT [Concomitant]
  5. SERETIDE [Concomitant]
  6. ANDROTARDYL [Concomitant]
  7. THIOGUANINE [Concomitant]
     Indication: ACUTE LEUKAEMIA
     Dates: start: 19820501, end: 19841201
  8. HYDROXYCARBAMIDE [Concomitant]
     Indication: ACUTE LEUKAEMIA
     Dates: start: 19820501, end: 19841201
  9. CYTOSINE [Concomitant]
     Indication: ACUTE LEUKAEMIA
     Dates: start: 19820501, end: 19841201
  10. VINCRISTINE [Concomitant]
     Indication: ACUTE LEUKAEMIA
     Dates: start: 19820501, end: 19841201
  11. RUBIDOMYCIN [Concomitant]
     Indication: ACUTE LEUKAEMIA
     Dates: start: 19820501, end: 19841201
  12. ASPARAGINASE [Concomitant]
     Dates: start: 19860601, end: 19860701
  13. PURINETHOL [Concomitant]
     Dates: start: 19860701, end: 19860801
  14. DEXAMETHASONE 0.5MG TAB [Concomitant]
     Dates: start: 19870101, end: 19870201
  15. RADIATION THERAPY [Concomitant]
     Dates: start: 19820301, end: 19820401

REACTIONS (1)
  - PLEURAL FIBROSIS [None]
